FAERS Safety Report 21623558 (Version 15)
Quarter: 2024Q1

REPORT INFORMATION
  Report Type: Other
  Country: CA (occurrence: None)
  Receive Date: 20221121
  Receipt Date: 20240301
  Transmission Date: 20240409
  Serious: No
  Sender: FDA-Public Use
  Company Number: CA-ROCHE-2478785

PATIENT
  Age: 15 Year
  Sex: Female

DRUGS (5)
  1. OCREVUS [Suspect]
     Active Substance: OCRELIZUMAB
     Indication: Relapsing-remitting multiple sclerosis
     Dosage: 300 MG AT DAY 0 AND 14, THEN 600 MG EVERY 6 MONTH, ONGOING YES?600 MG IN 500 ML AND 300 MG PER 10 ML
     Route: 042
     Dates: start: 20191030
  2. OCREVUS [Suspect]
     Active Substance: OCRELIZUMAB
     Dosage: NEXT INFUSION ON 03/MAR/2021
     Route: 042
     Dates: start: 20200429
  3. OCREVUS [Suspect]
     Active Substance: OCRELIZUMAB
     Route: 042
  4. TYLENOL [Concomitant]
     Active Substance: ACETAMINOPHEN
     Indication: Headache
  5. LYRICA [Concomitant]
     Active Substance: PREGABALIN

REACTIONS (26)
  - Infusion related reaction [Recovered/Resolved]
  - Chills [Unknown]
  - Swelling face [Recovered/Resolved]
  - Joint swelling [Recovered/Resolved]
  - Heart rate increased [Unknown]
  - Anxiety [Recovering/Resolving]
  - Fatigue [Not Recovered/Not Resolved]
  - Insomnia [Recovered/Resolved]
  - Infusion related reaction [Unknown]
  - Nasopharyngitis [Recovering/Resolving]
  - Malaise [Unknown]
  - Oropharyngeal pain [Unknown]
  - Fungal infection [Recovered/Resolved]
  - Bacterial vaginosis [Unknown]
  - Burning sensation [Unknown]
  - Paraesthesia [Recovering/Resolving]
  - Skin burning sensation [Unknown]
  - Gastroenteritis viral [Recovered/Resolved]
  - Urinary tract infection [Recovered/Resolved]
  - Abdominal discomfort [Not Recovered/Not Resolved]
  - Pollakiuria [Not Recovered/Not Resolved]
  - Sexually transmitted disease [Recovered/Resolved]
  - Dry skin [Not Recovered/Not Resolved]
  - Dermatitis contact [Unknown]
  - Skin exfoliation [Not Recovered/Not Resolved]
  - Fungal skin infection [Unknown]

NARRATIVE: CASE EVENT DATE: 20191030
